FAERS Safety Report 26131566 (Version 1)
Quarter: 2025Q4

REPORT INFORMATION
  Report Type: Spontaneous
  Country: EU (occurrence: EU)
  Receive Date: 20251208
  Receipt Date: 20251208
  Transmission Date: 20260118
  Serious: Yes (Hospitalization)
  Sender: FRESENIUS KABI
  Company Number: None

PATIENT
  Age: 66 Year
  Sex: Female
  Weight: 74 kg

DRUGS (7)
  1. PIPERACILLIN AND TAZOBACTAM [Suspect]
     Active Substance: PIPERACILLIN SODIUM\TAZOBACTAM SODIUM
     Indication: Device related infection
     Route: 042
     Dates: end: 20251025
  2. PIPERACILLIN AND TAZOBACTAM [Suspect]
     Active Substance: PIPERACILLIN SODIUM\TAZOBACTAM SODIUM
     Route: 042
     Dates: end: 20251103
  3. MEROPENEM [Suspect]
     Active Substance: MEROPENEM
     Indication: Device related infection
     Route: 042
     Dates: end: 20251101
  4. DAPTOMYCINE MEDAC 350 mg, powder for solution for injection/infusion [Concomitant]
     Indication: Product used for unknown indication
     Dosage: 10MG/KG/D
     Route: 042
     Dates: start: 20251015
  5. NEBIVOLOL [Concomitant]
     Active Substance: NEBIVOLOL
     Indication: Product used for unknown indication
  6. ESOMEPRAZOLE [Concomitant]
     Active Substance: ESOMEPRAZOLE
     Indication: Product used for unknown indication
  7. LOVENOX [Concomitant]
     Active Substance: ENOXAPARIN SODIUM
     Indication: Product used for unknown indication

REACTIONS (4)
  - Acquired factor V deficiency [Recovering/Resolving]
  - Anaemia [Not Recovered/Not Resolved]
  - Anti factor V antibody positive [Not Recovered/Not Resolved]
  - Thrombocytopenia [Recovering/Resolving]

NARRATIVE: CASE EVENT DATE: 20251001
